FAERS Safety Report 23980029 (Version 1)
Quarter: 2024Q2

REPORT INFORMATION
  Report Type: Spontaneous
  Country: US (occurrence: US)
  Receive Date: 20240617
  Receipt Date: 20240617
  Transmission Date: 20240715
  Serious: No
  Sender: FDA-Public Use
  Company Number: US-009507513-2406USA003911

PATIENT
  Age: 46 Year
  Sex: Female

DRUGS (4)
  1. KEYTRUDA [Suspect]
     Active Substance: PEMBROLIZUMAB
     Indication: Cervix carcinoma stage III
     Dosage: UNK
     Route: 042
     Dates: start: 20231120
  2. SEROQUEL [Concomitant]
     Active Substance: QUETIAPINE FUMARATE
  3. XANAX [Concomitant]
     Active Substance: ALPRAZOLAM
  4. LEVOTHYROXINE [Concomitant]
     Active Substance: LEVOTHYROXINE\LEVOTHYROXINE SODIUM

REACTIONS (4)
  - Product dose omission issue [Unknown]
  - Insurance issue [Unknown]
  - Inability to afford medication [Unknown]
  - No adverse event [Unknown]

NARRATIVE: CASE EVENT DATE: 20240603
